FAERS Safety Report 5700143-6 (Version None)
Quarter: 2008Q2

REPORT INFORMATION
  Report Type: 
  Country: None (occurrence: None)
  Receive Date: 20080410
  Receipt Date: 20080320
  Transmission Date: 20081010
  Serious: Yes (Other)
  Sender: FDA-Public Use
  Company Number: US-BAUSCH-2008BL000047

PATIENT
  Age: 25 Year
  Sex: Male

DRUGS (1)
  1. COLLYRIUM EYE WASH [Suspect]
     Indication: DRUG USE FOR UNKNOWN INDICATION
     Route: 047
     Dates: start: 20071229, end: 20071229

REACTIONS (3)
  - CHEMICAL BURNS OF EYE [None]
  - EYE IRRITATION [None]
  - LACRIMATION INCREASED [None]
